FAERS Safety Report 5919829-3 (Version None)
Quarter: 2008Q4

REPORT INFORMATION
  Report Type: 
  Country: None (occurrence: None)
  Receive Date: 20081015
  Receipt Date: 20081003
  Transmission Date: 20090506
  Serious: Yes (Other)
  Sender: FDA-Public Use
  Company Number: US-PFIZER INC-2008079873

PATIENT
  Sex: Female
  Weight: 115.7 kg

DRUGS (4)
  1. CHANTIX [Suspect]
     Indication: SMOKING CESSATION THERAPY
     Dates: start: 20080704, end: 20080905
  2. WELLBUTRIN [Concomitant]
     Indication: DEPRESSION
  3. LEXAPRO [Concomitant]
     Indication: DEPRESSION
  4. SYNTHROID [Concomitant]

REACTIONS (4)
  - DEPRESSION [None]
  - DIABETES MELLITUS [None]
  - SUICIDAL IDEATION [None]
  - WEIGHT INCREASED [None]
